FAERS Safety Report 7384578-4 (Version None)
Quarter: 2011Q1

REPORT INFORMATION
  Report Type: 
  Country: None (occurrence: None)
  Receive Date: 20110322
  Receipt Date: 20110309
  Transmission Date: 20110831
  Serious: Yes (Life-Threatening, Hospitalization)
  Sender: FDA-Public Use
  Company Number: 2010PV000075

PATIENT
  Age: 8 Year
  Sex: Male

DRUGS (9)
  1. CYTARABINE [Concomitant]
  2. DEXAMETHASONE [Concomitant]
  3. PEG-ASPARAGINASE [Concomitant]
  4. PRECORTALON AQUOSUM [Concomitant]
  5. DEPOCYT [Suspect]
     Indication: ACUTE LYMPHOCYTIC LEUKAEMIA RECURRENT
     Dosage: 35 MG, INTH
     Route: 037
     Dates: start: 20080626, end: 20080724
  6. VINCRISTINE [Concomitant]
  7. METHOTREXATE [Concomitant]
  8. IFOSFAMIDE [Concomitant]
  9. LANVIS [Concomitant]

REACTIONS (2)
  - INTRACRANIAL PRESSURE INCREASED [None]
  - CONCOMITANT DISEASE PROGRESSION [None]
